FAERS Safety Report 4670161-8 (Version None)
Quarter: 2005Q2

REPORT INFORMATION
  Report Type: 
  Country: None (occurrence: None)
  Receive Date: 20050520
  Receipt Date: 20050510
  Transmission Date: 20051028
  Serious: Yes (Other)
  Sender: FDA-Public Use
  Company Number: 2005059977

PATIENT
  Age: 81 Year
  Sex: Female

DRUGS (4)
  1. BEXTRA [Suspect]
     Indication: JOINT INJURY
     Dates: start: 20040902, end: 20040910
  2. HYDROCODONE (HYDRCODONE) [Concomitant]
  3. NITROFURANTOIN [Concomitant]
  4. ALL OTHER THERAPEUTIC PRODUCTS [Concomitant]

REACTIONS (2)
  - ERYTHEMA MULTIFORME [None]
  - STEVENS-JOHNSON SYNDROME [None]
